FAERS Safety Report 5309309-0 (Version None)
Quarter: 2007Q2

REPORT INFORMATION
  Report Type: 
  Country: None (occurrence: None)
  Receive Date: 20070424
  Receipt Date: 20070424
  Transmission Date: 20071010
  Serious: Yes (Hospitalization)
  Sender: FDA-Public Use
  Company Number: None

PATIENT
  Sex: Male
  Weight: 86.1834 kg

DRUGS (1)
  1. SIMVASTATIN [Suspect]
     Indication: HYPERCHOLESTEROLAEMIA
     Dosage: 80 MG QD PO
     Route: 048
     Dates: start: 20070219, end: 20070302

REACTIONS (2)
  - PHARMACEUTICAL PRODUCT COMPLAINT [None]
  - RHABDOMYOLYSIS [None]
